FAERS Safety Report 16965786 (Version 2)
Quarter: 2020Q1

REPORT INFORMATION
  Report Type: Spontaneous
  Country: IT (occurrence: IT)
  Receive Date: 20191028
  Receipt Date: 20200121
  Transmission Date: 20200409
  Serious: Yes (Hospitalization)
  Sender: FDA-Public Use
  Company Number: IT-PFIZER INC-2019459807

PATIENT
  Age: 15 Year
  Sex: Female
  Weight: 45 kg

DRUGS (1)
  1. METHOTREXATE SODIUM. [Suspect]
     Active Substance: METHOTREXATE SODIUM
     Indication: NON-HODGKIN^S LYMPHOMA
     Dosage: (TOTAL OF 7212 MG)
     Route: 042
     Dates: start: 20190812, end: 20190812

REACTIONS (2)
  - Vomiting [Recovered/Resolved]
  - Blood creatine increased [Recovered/Resolved]

NARRATIVE: CASE EVENT DATE: 20190813
